FAERS Safety Report 7592969-1 (Version None)
Quarter: 2011Q3

REPORT INFORMATION
  Report Type: 
  Country: None (occurrence: None)
  Receive Date: 20110706
  Receipt Date: 20110628
  Transmission Date: 20111222
  Serious: Yes (Other)
  Sender: FDA-Public Use
  Company Number: CA-GLAXOSMITHKLINE-A0933606A

PATIENT
  Sex: Female
  Weight: 79.5 kg

DRUGS (5)
  1. LYRICA [Concomitant]
  2. NEXIUM [Concomitant]
  3. SYNTHROID [Concomitant]
  4. ADVAIR DISKUS 100/50 [Suspect]
     Indication: ASTHMA
     Dosage: 1PUFF TWICE PER DAY
     Route: 055
     Dates: start: 20101101
  5. CALCIUM CARBONATE [Concomitant]

REACTIONS (8)
  - DIZZINESS [None]
  - ANGINA PECTORIS [None]
  - SPUTUM INCREASED [None]
  - INCREASED UPPER AIRWAY SECRETION [None]
  - OROPHARYNGEAL PAIN [None]
  - URINE ABNORMALITY [None]
  - FATIGUE [None]
  - HEADACHE [None]
